FAERS Safety Report 4640746-3 (Version None)
Quarter: 2005Q2

REPORT INFORMATION
  Report Type: 
  Country: None (occurrence: None)
  Receive Date: 20050419
  Receipt Date: 20050415
  Transmission Date: 20051028
  Serious: Yes (Death, Life-Threatening)
  Sender: FDA-Public Use
  Company Number: TIF2004A00041

PATIENT
  Age: 42 Year
  Sex: Female

DRUGS (11)
  1. LANSOX (LANSOPRAZOLE) (CAPSULES) [Suspect]
     Indication: GASTRIC ULCER HAEMORRHAGE
     Dosage: 30 MG (15 MG, 2, ORAL)
     Route: 048
     Dates: start: 20041119
  2. CARNITENE (CARNITINE HYDROCHLORIDE) (INJECTION) [Suspect]
     Dosage: 2 G (2 G, 1 IN 1, INTRAVENOUS)
     Route: 042
     Dates: start: 20041119
  3. CALCIJEX [Concomitant]
  4. EUTIROX (LEVOTHYROXINE) [Concomitant]
  5. ALUMINUM HYDROXIDE AND MAGNESIUM TRISILICATE [Concomitant]
  6. NEBILOX (NEBIVOLOL HYDROCHLORIDE) [Concomitant]
  7. EPREX [Concomitant]
  8. RENAGEL [Concomitant]
  9. SUCRALFIN (SUCRALFATE) [Concomitant]
  10. YOVIS (GRANULATE) [Concomitant]
  11. OMEPRAZOLE [Concomitant]

REACTIONS (4)
  - CARDIAC ARREST [None]
  - ERYTHEMA MULTIFORME [None]
  - STEVENS-JOHNSON SYNDROME [None]
  - TOXIC EPIDERMAL NECROLYSIS [None]
